FAERS Safety Report 16640238 (Version 1)
Quarter: 2019Q3

REPORT INFORMATION
  Report Type: Spontaneous
  Country: CA (occurrence: CA)
  Receive Date: 20190728
  Receipt Date: 20190728
  Transmission Date: 20191004
  Serious: Yes (Life-Threatening, Hospitalization, Other)
  Sender: FDA-Public Use
  Company Number: CA-TEVA-2019-CA-1083187

PATIENT
  Age: 16 Month
  Sex: Female

DRUGS (5)
  1. IBUPROFEN. [Suspect]
     Active Substance: IBUPROFEN
     Indication: PARAINFLUENZAE VIRUS INFECTION
     Route: 065
  2. CHLORAL HYDRATE [Suspect]
     Active Substance: CHLORAL HYDRATE
     Indication: SEDATION
     Route: 065
  3. DEXAMETHASONE. [Suspect]
     Active Substance: DEXAMETHASONE
     Indication: CROUP INFECTIOUS
  4. IBUPROFEN. [Suspect]
     Active Substance: IBUPROFEN
     Indication: CROUP INFECTIOUS
  5. DEXAMETHASONE. [Suspect]
     Active Substance: DEXAMETHASONE
     Indication: PARAINFLUENZAE VIRUS INFECTION
     Route: 065

REACTIONS (3)
  - Duodenal ulcer perforation [Unknown]
  - Off label use [Unknown]
  - Product use in unapproved indication [Unknown]
